FAERS Safety Report 26048480 (Version 1)
Quarter: 2025Q4

REPORT INFORMATION
  Report Type: Spontaneous
  Country: US (occurrence: US)
  Receive Date: 20251114
  Receipt Date: 20251114
  Transmission Date: 20260117
  Serious: Yes (Other)
  Sender: PURDUE
  Company Number: US-PURDUE PHARMA-USA-2025-0322109

PATIENT
  Age: 54 Year
  Sex: Female

DRUGS (7)
  1. OXYCODONE HYDROCHLORIDE [Suspect]
     Active Substance: OXYCODONE HYDROCHLORIDE
     Indication: Product used for unknown indication
     Dosage: UNK
     Route: 065
  2. BUPRENORPHINE\NALOXONE [Concomitant]
     Active Substance: BUPRENORPHINE\NALOXONE
     Indication: Drug use disorder
     Dosage: 8 MG/2 MG, TWICE/D
     Route: 065
  3. BUPRENORPHINE\NALOXONE [Concomitant]
     Active Substance: BUPRENORPHINE\NALOXONE
     Indication: Trigeminal neuralgia
  4. OXYCODONE AND ACETAMINOPHEN [Concomitant]
     Active Substance: ACETAMINOPHEN\OXYCODONE HYDROCHLORIDE
     Indication: Trigeminal neuralgia
     Dosage: UNK
     Route: 065
  5. TRAMADOL [Concomitant]
     Active Substance: TRAMADOL
     Indication: Trigeminal neuralgia
     Dosage: UNK
     Route: 065
  6. DALFAMPRIDINE [Concomitant]
     Active Substance: DALFAMPRIDINE
     Indication: Multiple sclerosis
     Dosage: UNK
     Route: 065
  7. OCRELIZUMAB [Concomitant]
     Active Substance: OCRELIZUMAB
     Indication: Multiple sclerosis
     Dosage: 30 MILLIGRAM, EVERY 6 MO
     Route: 042

REACTIONS (5)
  - Multiple sclerosis [Unknown]
  - Drug use disorder [Unknown]
  - Trigeminal neuralgia [Unknown]
  - Drug screen positive [Unknown]
  - Drug resistance [Unknown]
